FAERS Safety Report 21536131 (Version 1)
Quarter: 2022Q4

REPORT INFORMATION
  Report Type: Spontaneous
  Country: JP (occurrence: JP)
  Receive Date: 20221101
  Receipt Date: 20221101
  Transmission Date: 20230113
  Serious: Yes (Hospitalization)
  Sender: FDA-Public Use
  Company Number: JP-AMNEAL PHARMACEUTICALS-2022-AMRX-03099

PATIENT
  Age: 72 Year
  Sex: Male
  Weight: 59 kg

DRUGS (9)
  1. ALYMSYS [Suspect]
     Active Substance: BEVACIZUMAB-MALY
     Indication: Hepatocellular carcinoma
     Dosage: UNK
     Route: 065
     Dates: start: 202110
  2. ATEZOLIZUMAB [Suspect]
     Active Substance: ATEZOLIZUMAB
     Indication: Hepatocellular carcinoma
     Dosage: UNK
     Route: 065
     Dates: start: 202110
  3. FAMOTIDINE [Concomitant]
     Active Substance: FAMOTIDINE
     Indication: Product used for unknown indication
     Dosage: 40 MILLIGRAM, DAILY
     Route: 065
  4. ENTECAVIR [Concomitant]
     Active Substance: ENTECAVIR
     Indication: Product used for unknown indication
     Dosage: 0.5 MILLIGRAM, DAILY
     Route: 065
  5. WARFARIN POTASSIUM [Concomitant]
     Active Substance: WARFARIN POTASSIUM
     Indication: Product used for unknown indication
     Dosage: 2 MILLIGRAM, DAILY
     Route: 065
  6. RIFAXIMIN [Concomitant]
     Active Substance: RIFAXIMIN
     Indication: Product used for unknown indication
     Dosage: 600 MILLIGRAM, DAILY
     Route: 065
  7. L-ISOLEUCINE [Concomitant]
     Indication: Product used for unknown indication
     Route: 065
  8. LEUCINE [Concomitant]
     Active Substance: LEUCINE
     Indication: Product used for unknown indication
     Route: 065
  9. VALINE [Concomitant]
     Active Substance: VALINE
     Indication: Product used for unknown indication
     Dosage: 12.45 MILLIGRAM, DAILY
     Route: 065

REACTIONS (3)
  - Enteritis [Recovered/Resolved]
  - Gastrointestinal oedema [Unknown]
  - Jejunal ulcer perforation [Unknown]
